FAERS Safety Report 21077188 (Version 1)
Quarter: 2022Q3

REPORT INFORMATION
  Report Type: Spontaneous
  Country: US (occurrence: None)
  Receive Date: 20220713
  Receipt Date: 20220713
  Transmission Date: 20221027
  Serious: No
  Sender: FDA-Public Use
  Company Number: None

PATIENT
  Sex: Female

DRUGS (2)
  1. DEVICE [Suspect]
     Active Substance: DEVICE
     Indication: Osteoarthritis
     Dosage: OTHER QUANTITY : 80 MCG;?FREQUENCY : DAILY;?
     Route: 058
     Dates: start: 202206
  2. TYMLOS [Suspect]
     Active Substance: ABALOPARATIDE
     Indication: Product used for unknown indication

REACTIONS (10)
  - Muscle spasticity [None]
  - Dizziness [None]
  - Somnolence [None]
  - Muscle spasms [None]
  - Fatigue [None]
  - Confusional state [None]
  - Rash [None]
  - Rash [None]
  - Needle issue [None]
  - Adverse drug reaction [None]
